FAERS Safety Report 24989446 (Version 1)
Quarter: 2025Q1

REPORT INFORMATION
  Report Type: Spontaneous
  Country: US (occurrence: US)
  Receive Date: 20250220
  Receipt Date: 20250220
  Transmission Date: 20250408
  Serious: Yes (Other)
  Sender: RANBAXY
  Company Number: US-SUN PHARMACEUTICAL INDUSTRIES LTD-2025R1-494866

PATIENT
  Sex: Female

DRUGS (6)
  1. CLINDAMYCIN [Suspect]
     Active Substance: CLINDAMYCIN
     Indication: Prophylaxis
     Route: 065
  2. BACTRIM [Suspect]
     Active Substance: SULFAMETHOXAZOLE\TRIMETHOPRIM
     Indication: Prophylaxis
     Route: 065
  3. MEROPENEM [Suspect]
     Active Substance: MEROPENEM
     Indication: Prophylaxis
     Route: 065
  4. DAPTOMYCIN [Suspect]
     Active Substance: DAPTOMYCIN
     Indication: Prophylaxis
     Route: 065
  5. TIGECYCLINE [Suspect]
     Active Substance: TIGECYCLINE
     Indication: Prophylaxis
     Route: 065
  6. AMBISOME [Suspect]
     Active Substance: AMPHOTERICIN B
     Indication: Prophylaxis
     Route: 065

REACTIONS (2)
  - Therapy non-responder [Unknown]
  - Condition aggravated [Unknown]
